FAERS Safety Report 4765705-1 (Version None)
Quarter: 2005Q3

REPORT INFORMATION
  Report Type: 
  Country: None (occurrence: None)
  Receive Date: 20050906
  Receipt Date: 20050819
  Transmission Date: 20060218
  Serious: Yes (Hospitalization)
  Sender: FDA-Public Use
  Company Number: JP_050807378

PATIENT
  Age: 55 Year
  Sex: Female

DRUGS (2)
  1. HUMALOG [Suspect]
     Dates: start: 20050501
  2. LANTUS [Concomitant]

REACTIONS (4)
  - ALANINE AMINOTRANSFERASE INCREASED [None]
  - ASPARTATE AMINOTRANSFERASE INCREASED [None]
  - HEPATIC FUNCTION ABNORMAL [None]
  - LABORATORY TEST ABNORMAL [None]
